FAERS Safety Report 4864820-1 (Version None)
Quarter: 2005Q4

REPORT INFORMATION
  Report Type: 
  Country: None (occurrence: None)
  Receive Date: 20051222
  Receipt Date: 20050919
  Transmission Date: 20060501
  Serious: Yes (Death, Hospitalization, Other)
  Sender: FDA-Public Use
  Company Number: US-MERCK-0509USA02634

PATIENT
  Age: 76 Year
  Sex: Female
  Weight: 59 kg

DRUGS (19)
  1. VIOXX [Suspect]
     Indication: OSTEOARTHRITIS
     Route: 048
     Dates: start: 20000918, end: 20021225
  2. ZOCOR [Concomitant]
     Route: 065
  3. PLAVIX [Concomitant]
     Route: 065
  4. PRIMIDONE [Concomitant]
     Route: 065
  5. PYRIDIUM [Concomitant]
     Route: 065
  6. CARDIZEM [Concomitant]
     Route: 065
  7. NASONEX [Concomitant]
     Route: 065
  8. HUMALOG [Concomitant]
     Route: 058
  9. ACCUPRIL [Concomitant]
     Route: 065
  10. LEVSIN [Concomitant]
     Route: 065
  11. POTASSIUM (UNSPECIFIED) [Concomitant]
     Route: 065
  12. HYDROCHLOROTHIAZIDE [Concomitant]
     Route: 065
  13. SYNTHROID [Concomitant]
     Route: 065
  14. AZITHROMYCIN [Concomitant]
     Route: 065
  15. CLINDAMYCIN [Concomitant]
     Route: 065
  16. CEFTRIAXONE SODIUM [Concomitant]
     Route: 065
  17. VIOXX [Suspect]
     Indication: ARTHRITIS
     Route: 048
     Dates: start: 19980101, end: 20000816
  18. VIOXX [Suspect]
     Route: 048
     Dates: start: 20000918, end: 20021225
  19. VIOXX [Suspect]
     Route: 048
     Dates: start: 19980101, end: 20000816

REACTIONS (46)
  - ANAEMIA [None]
  - ANOREXIA [None]
  - ARTERIOSCLEROSIS [None]
  - ASPIRATION [None]
  - ASTHENIA [None]
  - CARDIAC FAILURE CONGESTIVE [None]
  - CARDIO-RESPIRATORY ARREST [None]
  - CAROTID BRUIT [None]
  - CEREBRAL INFARCTION [None]
  - CEREBRAL ISCHAEMIA [None]
  - CEREBROVASCULAR ACCIDENT [None]
  - CHRONIC OBSTRUCTIVE PULMONARY DISEASE [None]
  - COLLAGEN DISORDER [None]
  - CONTUSION [None]
  - CORONARY ARTERY DISEASE [None]
  - COUGH [None]
  - DEPRESSION [None]
  - DIABETES MELLITUS [None]
  - DIPLOPIA [None]
  - DYSPHAGIA [None]
  - DYSPHASIA [None]
  - DYSPNOEA [None]
  - FLANK PAIN [None]
  - HYPERLIPIDAEMIA [None]
  - HYPERTENSION [None]
  - INJURY [None]
  - INTERMITTENT CLAUDICATION [None]
  - MUSCLE SPASMS [None]
  - MYOCARDIAL INFARCTION [None]
  - ORTHOSTATIC HYPOTENSION [None]
  - OSTEOPOROSIS [None]
  - PALPITATIONS [None]
  - PHARYNGOLARYNGEAL PAIN [None]
  - PNEUMONIA [None]
  - PNEUMONIA ASPIRATION [None]
  - RENAL FAILURE ACUTE [None]
  - RHINITIS ALLERGIC [None]
  - SPINAL COMPRESSION FRACTURE [None]
  - SPINAL DECOMPRESSION [None]
  - STAPHYLOCOCCAL INFECTION [None]
  - STRESS INCONTINENCE [None]
  - SUDDEN DEATH [None]
  - URINARY TRACT INFECTION [None]
  - VASCULAR DEMENTIA [None]
  - VERTEBRAL ARTERY STENOSIS [None]
  - WEIGHT DECREASED [None]
